FAERS Safety Report 15733374 (Version 3)
Quarter: 2019Q3

REPORT INFORMATION
  Report Type: Spontaneous
  Country: US (occurrence: US)
  Receive Date: 20181218
  Receipt Date: 20190924
  Transmission Date: 20191004
  Serious: Yes (Other)
  Sender: FDA-Public Use
  Company Number: US-PFIZER INC-2018470700

PATIENT
  Age: 70 Year
  Sex: Female

DRUGS (4)
  1. IBRANCE [Suspect]
     Active Substance: PALBOCICLIB
     Dosage: 75 MG, (FOR 14 DAYS AT A TIME AND OFF 14 DAYS)
     Route: 048
  2. IBRANCE [Suspect]
     Active Substance: PALBOCICLIB
     Indication: BREAST CANCER FEMALE
     Dosage: 75 MG, CYCLIC (21 DAYS ON,1 TABLET A DAY, THEN 7 DAYS OFF)
     Dates: start: 20181004
  3. IBRANCE [Suspect]
     Active Substance: PALBOCICLIB
     Dosage: 75 MG (TAKES 14 PILLS)
     Route: 048
  4. IBRANCE [Suspect]
     Active Substance: PALBOCICLIB
     Indication: MALIGNANT NEOPLASM OF THORAX
     Dosage: 75 MG, CYCLIC (75MG FOR 14 DAYS ON, THEN 14 DAYS OFF)
     Route: 048

REACTIONS (3)
  - Tongue disorder [Unknown]
  - Thrombosis [Unknown]
  - Peripheral swelling [Unknown]
